FAERS Safety Report 8304805 (Version 8)
Quarter: 2013Q1

REPORT INFORMATION
  Report Type: Spontaneous
  Country: CA (occurrence: CA)
  Receive Date: 20111221
  Receipt Date: 20130327
  Transmission Date: 20140127
  Serious: Yes (Disabling)
  Sender: FDA-Public Use
  Company Number: PHHY2011CA106812

PATIENT
  Age: 33 None
  Sex: Female

DRUGS (3)
  1. GILENYA [Suspect]
     Indication: RELAPSING-REMITTING MULTIPLE SCLEROSIS
     Dosage: 0.5 MG, DAILY
     Route: 048
     Dates: start: 20111114, end: 20111206
  2. GILENYA [Suspect]
     Dosage: 0.5 MG, DAILY
     Route: 048
     Dates: end: 20130203
  3. GILENYA [Suspect]
     Dosage: 0.5 MG, DAILY
     Route: 048
     Dates: start: 20130319

REACTIONS (12)
  - Vertigo [Not Recovered/Not Resolved]
  - Balance disorder [Not Recovered/Not Resolved]
  - Nausea [Unknown]
  - Gait disturbance [Unknown]
  - Diplopia [Unknown]
  - Gaze palsy [Not Recovered/Not Resolved]
  - Intervertebral disc protrusion [Unknown]
  - Fatigue [Recovering/Resolving]
  - Multiple sclerosis [Recovering/Resolving]
  - Central nervous system lesion [Recovering/Resolving]
  - Dizziness [Unknown]
  - Multiple sclerosis relapse [Recovered/Resolved]
